FAERS Safety Report 6666727-6 (Version None)
Quarter: 2010Q2

REPORT INFORMATION
  Report Type: 
  Country: None (occurrence: None)
  Receive Date: 20100402
  Receipt Date: 20100402
  Transmission Date: 20101027
  Serious: Yes (Other)
  Sender: FDA-Public Use
  Company Number: None

PATIENT
  Sex: Female

DRUGS (1)
  1. OXCARBAZEPINE [Suspect]
     Indication: EPILEPSY
     Dosage: 300MG TABS 1 QAM  1-1/2 PM P.O
     Route: 048
     Dates: start: 20100301

REACTIONS (6)
  - ARTHRALGIA [None]
  - COGNITIVE DISORDER [None]
  - FATIGUE [None]
  - INCONTINENCE [None]
  - ORAL DISORDER [None]
  - PRODUCT SUBSTITUTION ISSUE [None]
